FAERS Safety Report 17487958 (Version 8)
Quarter: 2021Q4

REPORT INFORMATION
  Report Type: Spontaneous
  Country: US (occurrence: US)
  Receive Date: 20200303
  Receipt Date: 20211220
  Transmission Date: 20220303
  Serious: Yes (Other)
  Sender: FDA-Public Use
  Company Number: US-PFIZER INC-2020094058

PATIENT
  Age: 76 Year
  Sex: Male

DRUGS (1)
  1. XELJANZ XR [Suspect]
     Active Substance: TOFACITINIB CITRATE
     Dosage: 11 MG, DAILY
     Route: 048

REACTIONS (4)
  - Blindness [Not Recovered/Not Resolved]
  - Cerebrovascular accident [Unknown]
  - Hypoacusis [Not Recovered/Not Resolved]
  - Product prescribing error [Unknown]
